FAERS Safety Report 19472861 (Version 1)
Quarter: 2021Q2

REPORT INFORMATION
  Report Type: Spontaneous
  Country: CN (occurrence: CN)
  Receive Date: 20210629
  Receipt Date: 20210629
  Transmission Date: 20210717
  Serious: Yes (Hospitalization, Other)
  Sender: FDA-Public Use
  Company Number: CN-SA-2021SA204213

PATIENT
  Age: 62 Year
  Sex: Male
  Weight: 65 kg

DRUGS (2)
  1. PLAVIX [Suspect]
     Active Substance: CLOPIDOGREL BISULFATE
     Indication: CORONARY ARTERY DISEASE
     Dosage: 1 DF, QD
     Route: 048
     Dates: start: 20200103, end: 20200104
  2. ASPIRINE [Suspect]
     Active Substance: ASPIRIN
     Indication: CORONARY ARTERY DISEASE
     Dosage: 1 DF, QD
     Route: 048
     Dates: start: 20200103, end: 20200104

REACTIONS (2)
  - Upper gastrointestinal haemorrhage [Recovered/Resolved with Sequelae]
  - Acute kidney injury [Recovered/Resolved with Sequelae]

NARRATIVE: CASE EVENT DATE: 20210103
